FAERS Safety Report 15423192 (Version 2)
Quarter: 2019Q1

REPORT INFORMATION
  Report Type: Spontaneous
  Country: US (occurrence: US)
  Receive Date: 20180925
  Receipt Date: 20190222
  Transmission Date: 20190417
  Serious: Yes (Life-Threatening, Hospitalization, Other)
  Sender: FDA-Public Use
  Company Number: US-SUN PHARMACEUTICAL INDUSTRIES LTD-2018US-185236

PATIENT
  Age: 47 Year
  Sex: Male

DRUGS (2)
  1. LISINOPRIL. [Suspect]
     Active Substance: LISINOPRIL
     Indication: PRODUCT USED FOR UNKNOWN INDICATION
     Dosage: APPROXIMATELY 200 MG
     Route: 065
  2. AMLODIPINE [Suspect]
     Active Substance: AMLODIPINE BESYLATE
     Indication: PRODUCT USED FOR UNKNOWN INDICATION
     Dosage: APPROXIMATELY 400 MG
     Route: 065

REACTIONS (10)
  - Intentional overdose [Unknown]
  - Acute kidney injury [Recovering/Resolving]
  - Lactic acidosis [Unknown]
  - Pulmonary oedema [Unknown]
  - Tachypnoea [Unknown]
  - Hypoxia [Recovering/Resolving]
  - Leukocytosis [Unknown]
  - Suicide attempt [Unknown]
  - Hypotension [Unknown]
  - Vomiting [Unknown]
